FAERS Safety Report 18532337 (Version 2)
Quarter: 2020Q4

REPORT INFORMATION
  Report Type: Spontaneous
  Country: FR (occurrence: FR)
  Receive Date: 20201123
  Receipt Date: 20201205
  Transmission Date: 20210114
  Serious: Yes (Other)
  Sender: FDA-Public Use
  Company Number: FR-AUROBINDO-AUR-APL-2020-056943

PATIENT
  Age: 87 Year
  Sex: Male

DRUGS (1)
  1. FRUSEMIDE ARROW 20 MG SCORED TABLETS [Suspect]
     Active Substance: FUROSEMIDE
     Indication: OEDEMA PERIPHERAL
     Dosage: 20 MILLIGRAM, ONCE A DAY
     Route: 048
     Dates: start: 20201021

REACTIONS (1)
  - Hypokalaemia [Recovered/Resolved]

NARRATIVE: CASE EVENT DATE: 20201022
